FAERS Safety Report 6985425-2 (Version None)
Quarter: 2010Q3

REPORT INFORMATION
  Report Type: 
  Country: None (occurrence: None)
  Receive Date: 20100915
  Receipt Date: 20100910
  Transmission Date: 20110219
  Serious: Yes (Hospitalization)
  Sender: FDA-Public Use
  Company Number: A0802640A

PATIENT
  Age: 60 Year
  Sex: Male

DRUGS (4)
  1. AVANDIA [Suspect]
     Dosage: 4MG TWICE PER DAY
     Route: 048
     Dates: start: 20000101, end: 20070320
  2. VERAPAMIL [Concomitant]
  3. VASOTEC [Concomitant]
  4. HYDROCHLOROTHIAZIDE [Concomitant]

REACTIONS (3)
  - ARTERIOSCLEROSIS CORONARY ARTERY [None]
  - CARDIAC DISORDER [None]
  - MYOCARDIAL INFARCTION [None]
